FAERS Safety Report 18792116 (Version 3)
Quarter: 2021Q3

REPORT INFORMATION
  Report Type: Report from Study
  Country: CA (occurrence: CA)
  Receive Date: 20210126
  Receipt Date: 20210720
  Transmission Date: 20211014
  Serious: Yes (Other)
  Sender: FDA-Public Use
  Company Number: CA-JNJFOC-20210129639

PATIENT
  Age: 17 Year
  Sex: Female
  Weight: 54.3 kg

DRUGS (3)
  1. REMICADE [Suspect]
     Active Substance: INFLIXIMAB
     Dosage: ON 25?MAR?2021, THE PATIENT RECEIVED 29TH 10 MG/KG OF INFLIXIMAB, RECOMBINANT INFUSION.
     Route: 042
     Dates: start: 201805
  2. REMICADE [Suspect]
     Active Substance: INFLIXIMAB
     Indication: COLITIS ULCERATIVE
     Route: 042
     Dates: start: 20170905
  3. REMICADE [Suspect]
     Active Substance: INFLIXIMAB
     Route: 042
     Dates: start: 201801

REACTIONS (4)
  - COVID-19 [Recovered/Resolved]
  - Product use issue [Unknown]
  - Immunosuppression [Unknown]
  - Off label use [Unknown]

NARRATIVE: CASE EVENT DATE: 201801
